FAERS Safety Report 14330993 (Version 2)
Quarter: 2017Q4

REPORT INFORMATION
  Report Type: Spontaneous
  Country: US (occurrence: US)
  Receive Date: 20171228
  Receipt Date: 20171228
  Transmission Date: 20180321
  Serious: No
  Sender: FDA-Public Use
  Company Number: US-ABBVIE-17P-163-1895289-00

PATIENT
  Sex: Female

DRUGS (2)
  1. LUPRON DEPOT [Suspect]
     Active Substance: LEUPROLIDE ACETATE
     Indication: ENDOMETRIOSIS
     Route: 050
  2. NORETHINDRONE. [Suspect]
     Active Substance: NORETHINDRONE
     Indication: ENDOMETRIOSIS
     Route: 048

REACTIONS (1)
  - Migraine [Not Recovered/Not Resolved]
